FAERS Safety Report 15289060 (Version 2)
Quarter: 2018Q3

REPORT INFORMATION
  Report Type: Spontaneous
  Country: JP (occurrence: JP)
  Receive Date: 20180817
  Receipt Date: 20180919
  Transmission Date: 20181010
  Serious: Yes (Death)
  Sender: FDA-Public Use
  Company Number: JP-CLINIGEN GROUP PLC/ CLINIGEN HEALTHCARE LTD-JP-CLGN-18-00325

PATIENT
  Age: 37 Year
  Sex: Female
  Weight: 105 kg

DRUGS (12)
  1. REBAMIPIDE [Concomitant]
     Active Substance: REBAMIPIDE
     Indication: PERIPHERAL SWELLING
  2. PREDONINE [Concomitant]
     Active Substance: PREDNISOLONE
     Dates: start: 20170207
  3. PREDONINE [Concomitant]
     Active Substance: PREDNISOLONE
     Dates: start: 20170213
  4. PREDONINE [Concomitant]
     Active Substance: PREDNISOLONE
     Indication: PRODUCT USED FOR UNKNOWN INDICATION
     Dates: start: 20170204
  5. LOXOPROFEN [Concomitant]
     Active Substance: LOXOPROFEN
     Indication: PAIN IN EXTREMITY
  6. REBAMIPIDE [Concomitant]
     Active Substance: REBAMIPIDE
     Indication: PAIN IN EXTREMITY
  7. PREDONINE [Concomitant]
     Active Substance: PREDNISOLONE
     Dates: start: 20170218
  8. FOSCAVIR [Suspect]
     Active Substance: FOSCARNET SODIUM
     Indication: CYTOMEGALOVIRUS INFECTION
     Dates: start: 20170310
  9. GANCICLOVIR. [Suspect]
     Active Substance: GANCICLOVIR
     Dates: start: 20170312
  10. LOXOPROFEN [Concomitant]
     Active Substance: LOXOPROFEN
     Indication: PERIPHERAL SWELLING
  11. METHYLPREDNISOLONE. [Concomitant]
     Active Substance: METHYLPREDNISOLONE
     Indication: PRODUCT USED FOR UNKNOWN INDICATION
     Dates: start: 20170201
  12. GANCICLOVIR. [Suspect]
     Active Substance: GANCICLOVIR
     Indication: CYTOMEGALOVIRUS INFECTION

REACTIONS (5)
  - Renal failure [Fatal]
  - Cytopenia [Fatal]
  - Respiratory failure [Fatal]
  - Hepatic failure [Fatal]
  - Off label use [Unknown]

NARRATIVE: CASE EVENT DATE: 20170227
